FAERS Safety Report 9301597 (Version 1)
Quarter: 2013Q2

REPORT INFORMATION
  Report Type: Spontaneous
  Country: US (occurrence: US)
  Receive Date: 20130521
  Receipt Date: 20130521
  Transmission Date: 20140414
  Serious: Yes (Other)
  Sender: FDA-Public Use
  Company Number: US-AMGEN-USASP2013035621

PATIENT
  Sex: 0

DRUGS (1)
  1. PROCRIT [Suspect]
     Indication: PRODUCT USED FOR UNKNOWN INDICATION
     Dosage: 45000 UNIT, QWK

REACTIONS (4)
  - Large granular lymphocytosis [Unknown]
  - Tinnitus [Unknown]
  - Bone pain [Unknown]
  - Myocardial infarction [Unknown]
